FAERS Safety Report 6251243-6 (Version None)
Quarter: 2009Q2

REPORT INFORMATION
  Report Type: 
  Country: None (occurrence: None)
  Receive Date: 20090630
  Receipt Date: 20090616
  Transmission Date: 20091009
  Serious: Yes (Hospitalization, Disabling)
  Sender: FDA-Public Use
  Company Number: NL-ELI_LILLY_AND_COMPANY-NL200905002801

PATIENT
  Sex: Male
  Weight: 95 kg

DRUGS (4)
  1. ALIMTA [Suspect]
     Indication: NON-SMALL CELL LUNG CANCER
     Dosage: 1000 MG/M2, UNKNOWN
     Route: 065
     Dates: start: 20090415, end: 20090416
  2. TARCEVA [Concomitant]
     Dosage: UNK, UNKNOWN
     Route: 065
  3. CISPLATIN [Concomitant]
     Indication: NON-SMALL CELL LUNG CANCER
     Dosage: 1 D/F, TIMES PER DOSE
     Route: 065
     Dates: start: 20090415, end: 20090416
  4. PARACETAMOL [Concomitant]
     Dosage: 500 MG, 4/D
     Route: 065
     Dates: start: 20090303

REACTIONS (1)
  - DEEP VEIN THROMBOSIS [None]
